FAERS Safety Report 24830863 (Version 5)
Quarter: 2025Q3

REPORT INFORMATION
  Report Type: Report from Study
  Country: US (occurrence: US)
  Receive Date: 20250110
  Receipt Date: 20250924
  Transmission Date: 20251021
  Serious: Yes (Other)
  Sender: SUNOVION
  Company Number: US-SUMITOMO PHARMA SWITZERLAND GMBH-2024SPA006792

PATIENT
  Age: 86 Year
  Sex: Male

DRUGS (20)
  1. ORGOVYX [Suspect]
     Active Substance: RELUGOLIX
     Indication: Prostate cancer
     Dosage: 360 MG, SINGLE
     Route: 048
  2. ORGOVYX [Suspect]
     Active Substance: RELUGOLIX
     Dosage: 120 MG, QD
     Route: 048
  3. NUBEQA [Suspect]
     Active Substance: DAROLUTAMIDE
     Indication: Prostate cancer
     Dosage: 600 MG, BID
     Route: 048
     Dates: start: 202404
  4. NUBEQA [Suspect]
     Active Substance: DAROLUTAMIDE
  5. BRIMONIDINE [Concomitant]
     Active Substance: BRIMONIDINE TARTRATE
     Route: 047
  6. DORZOLAMIDE [Concomitant]
     Active Substance: DORZOLAMIDE
     Route: 047
  7. LEVOTHYROXINE [Concomitant]
     Active Substance: LEVOTHYROXINE
  8. LUMIGAN [Concomitant]
     Active Substance: BIMATOPROST
     Route: 047
  9. METOPROLOL SUCCINATE [Concomitant]
     Active Substance: METOPROLOL SUCCINATE
  10. PREGABALIN [Concomitant]
     Active Substance: PREGABALIN
  11. RANIBIZUMAB [Concomitant]
     Active Substance: RANIBIZUMAB
  12. REQUIP [Concomitant]
     Active Substance: ROPINIROLE HYDROCHLORIDE
  13. ROCKLATAN [Concomitant]
     Active Substance: LATANOPROST\NETARSUDIL MESYLATE
     Route: 047
  14. SIMVASTATIN [Concomitant]
     Active Substance: SIMVASTATIN
  15. TRAMADOL [Concomitant]
     Active Substance: TRAMADOL
  16. VALSARTAN [Concomitant]
     Active Substance: VALSARTAN
  17. VOLTAREN [Concomitant]
     Active Substance: DICLOFENAC SODIUM
  18. AMOXICILLIN AND CLAVULANATE POTASSIUM [Concomitant]
     Active Substance: AMOXICILLIN\CLAVULANATE POTASSIUM
  19. FLUZONE [Concomitant]
     Active Substance: INFLUENZA VIRUS VACCINE
  20. GABAPENTIN [Concomitant]
     Active Substance: GABAPENTIN

REACTIONS (6)
  - Ear operation [Unknown]
  - Staphylococcal infection [Unknown]
  - Tinea cruris [Unknown]
  - Localised infection [Unknown]
  - Diarrhoea [Unknown]
  - Inappropriate schedule of product administration [Recovered/Resolved]

NARRATIVE: CASE EVENT DATE: 20241217
